FAERS Safety Report 6029509-4 (Version None)
Quarter: 2009Q1

REPORT INFORMATION
  Report Type: 
  Country: None (occurrence: None)
  Receive Date: 20090106
  Receipt Date: 20081231
  Transmission Date: 20090719
  Serious: Yes (Death)
  Sender: FDA-Public Use
  Company Number: US-GILEAD-2008-0019464

PATIENT
  Sex: Male
  Weight: 67.192 kg

DRUGS (12)
  1. LETAIRIS [Suspect]
     Indication: PULMONARY ARTERIAL HYPERTENSION
     Route: 048
     Dates: start: 20081125
  2. REVATIO [Concomitant]
  3. DIGOXIN [Concomitant]
  4. ATENOLOL [Concomitant]
  5. SINGULAIR [Concomitant]
  6. LASIX [Concomitant]
  7. FLOMAX [Concomitant]
  8. PREDNISONE [Concomitant]
  9. ZYRTEC [Concomitant]
  10. NEXIUM [Concomitant]
  11. MUCINEX [Concomitant]
  12. FERROUS SULFATE TAB [Concomitant]

REACTIONS (3)
  - DEATH [None]
  - HYPOTENSION [None]
  - RHINORRHOEA [None]
